FAERS Safety Report 13991532 (Version 1)
Quarter: 2017Q3

REPORT INFORMATION
  Report Type: Spontaneous
  Country: ES (occurrence: ES)
  Receive Date: 20170920
  Receipt Date: 20170920
  Transmission Date: 20171128
  Serious: Yes (Other)
  Sender: FDA-Public Use
  Company Number: ES-AUROBINDO-AUR-APL-2017-08516

PATIENT
  Age: 30 Year
  Sex: Female

DRUGS (1)
  1. OMEPRAZOLE 20MG [Suspect]
     Active Substance: OMEPRAZOLE
     Indication: ABDOMINAL PAIN UPPER
     Dosage: 20MG (INTERVAL UNKNOWN)

REACTIONS (10)
  - Anaphylactic reaction [Unknown]
  - Angioedema [Unknown]
  - Erythema [Unknown]
  - Nausea [Unknown]
  - Therapeutic product cross-reactivity [Unknown]
  - Dyspnoea [Unknown]
  - Pruritus [Unknown]
  - Swelling [Unknown]
  - Urticaria [Unknown]
  - Vomiting [Unknown]
